FAERS Safety Report 6308095-5 (Version None)
Quarter: 2009Q3

REPORT INFORMATION
  Report Type: 
  Country: None (occurrence: None)
  Receive Date: 20090813
  Receipt Date: 20090810
  Transmission Date: 20100115
  Serious: No
  Sender: FDA-Public Use
  Company Number: US-B.I. PHARMACEUTICALS,INC./RIDGEFIELD-2009-BP-09427BP

PATIENT
  Sex: Female

DRUGS (4)
  1. MIRAPEX [Suspect]
     Indication: PAIN IN EXTREMITY
     Dosage: 0.125 MG
     Route: 048
     Dates: end: 20090529
  2. MIRAPEX [Suspect]
     Indication: RESTLESS LEGS SYNDROME
  3. SYNTHROID [Concomitant]
     Indication: HYPOTHYROIDISM
  4. SIMVASTATIN [Concomitant]
     Dates: start: 20050101

REACTIONS (1)
  - PAIN IN EXTREMITY [None]
